FAERS Safety Report 6611581-1 (Version None)
Quarter: 2010Q1

REPORT INFORMATION
  Report Type: 
  Country: None (occurrence: None)
  Receive Date: 20100303
  Receipt Date: 20100226
  Transmission Date: 20100710
  Serious: Yes (Death, Other)
  Sender: FDA-Public Use
  Company Number: PHHY2010JP09627

PATIENT
  Age: 2 Year
  Sex: Male

DRUGS (13)
  1. SANDIMMUNE [Suspect]
     Indication: CORD BLOOD TRANSPLANT THERAPY
     Dosage: 4 MG/KG DAILY
     Route: 042
     Dates: start: 20080501
  2. NEORAL [Suspect]
     Indication: CORD BLOOD TRANSPLANT THERAPY
     Dosage: 5 MG/KG DAILY
     Route: 048
     Dates: start: 20080608, end: 20080614
  3. CYCLOSPORINE [Suspect]
  4. METHYLPREDNISOLONE [Suspect]
     Indication: ACUTE LYMPHOCYTIC LEUKAEMIA
     Dosage: 2 MG/KG, UNK
     Route: 042
  5. PREDNISOLONE [Concomitant]
     Indication: ACUTE LYMPHOCYTIC LEUKAEMIA
  6. DEXAMETHASONE [Concomitant]
     Indication: HISTIOCYTOSIS HAEMATOPHAGIC
     Dosage: 10 MG/M2/DAY
     Dates: start: 20080701, end: 20080701
  7. CYTARABINE [Concomitant]
     Indication: CORD BLOOD TRANSPLANT THERAPY
  8. METHOTREXATE [Concomitant]
     Indication: CORD BLOOD TRANSPLANT THERAPY
  9. VP-16 [Concomitant]
     Indication: CORD BLOOD TRANSPLANT THERAPY
     Dosage: 50 MG/M2/DAY
  10. VP-16 [Concomitant]
     Indication: HISTIOCYTOSIS HAEMATOPHAGIC
  11. HYPER-CVAD [Concomitant]
     Indication: ACUTE LYMPHOCYTIC LEUKAEMIA RECURRENT
  12. IRRADIATION [Concomitant]
     Indication: CORD BLOOD TRANSPLANT THERAPY
     Dosage: 12 GY, UNK
  13. CYCLOPHOSPHAMIDE [Concomitant]
     Indication: CORD BLOOD TRANSPLANT THERAPY

REACTIONS (12)
  - BLOOD PRODUCT TRANSFUSION [None]
  - CONTINUOUS HAEMODIAFILTRATION [None]
  - DIARRHOEA [None]
  - HISTIOCYTOSIS HAEMATOPHAGIC [None]
  - INTRAVENTRICULAR HAEMORRHAGE [None]
  - MECHANICAL VENTILATION [None]
  - MULTI-ORGAN FAILURE [None]
  - PANCYTOPENIA [None]
  - PYREXIA [None]
  - SERUM FERRITIN INCREASED [None]
  - STAPHYLOCOCCAL SEPSIS [None]
  - VENOOCCLUSIVE LIVER DISEASE [None]
